FAERS Safety Report 5807241-7 (Version None)
Quarter: 2008Q3

REPORT INFORMATION
  Report Type: 
  Country: None (occurrence: None)
  Receive Date: 20080711
  Receipt Date: 20080708
  Transmission Date: 20090109
  Serious: Yes (Congenital Anomaly)
  Sender: FDA-Public Use
  Company Number: GB-ASTRAZENECA-2007GB00325

PATIENT
  Age: 27 Year
  Sex: Female

DRUGS (1)
  1. TAMOXIFEN CITRATE [Suspect]
     Indication: BREAST CANCER
     Dosage: 20 MG
     Route: 064
     Dates: start: 20030101, end: 20060801

REACTIONS (9)
  - ABORTION SPONTANEOUS [None]
  - CONGENITAL ADRENAL GLAND HYPOPLASIA [None]
  - DRUG EXPOSURE DURING PREGNANCY [None]
  - INTRA-UTERINE DEATH [None]
  - MULTIPLE CONGENITAL ABNORMALITIES [None]
  - MULTIPLE GASTROINTESTINAL ATRESIAS [None]
  - SYNDACTYLY [None]
  - UMBILICAL CORD ABNORMALITY [None]
  - VENTRICULAR SEPTAL DEFECT [None]
